FAERS Safety Report 8553130-7 (Version None)
Quarter: 2012Q3

REPORT INFORMATION
  Report Type: 
  Country: None (occurrence: None)
  Receive Date: 20120731
  Receipt Date: 20120724
  Transmission Date: 20120928
  Serious: Yes (Hospitalization, Other)
  Sender: FDA-Public Use
  Company Number: US-AMGEN-USASP2012046626

PATIENT
  Age: 54 Year
  Sex: Female
  Weight: 79.365 kg

DRUGS (3)
  1. EFFEXOR XR [Concomitant]
     Indication: DEPRESSION
     Dosage: 300 MG, CAPSULE QD
     Route: 048
     Dates: end: 20120501
  2. PREMPRO [Concomitant]
     Indication: MENOPAUSE
  3. ENBREL [Suspect]
     Indication: RHEUMATOID ARTHRITIS
     Dosage: 50 MG, QWK
     Route: 058

REACTIONS (8)
  - STAPHYLOCOCCAL INFECTION [None]
  - GANGRENE [None]
  - OCULAR HYPERAEMIA [None]
  - INSOMNIA [None]
  - THERAPEUTIC PRODUCT INEFFECTIVE [None]
  - IMMUNE SYSTEM DISORDER [None]
  - OSTEONECROSIS [None]
  - RESTLESS LEGS SYNDROME [None]
